FAERS Safety Report 9165819 (Version 1)
Quarter: 2013Q1

REPORT INFORMATION
  Report Type: Report from Study
  Country: US (occurrence: US)
  Receive Date: 20130315
  Receipt Date: 20130315
  Transmission Date: 20140127
  Serious: Yes (Other)
  Sender: FDA-Public Use
  Company Number: US-ABBOTT-13P-163-1060854-00

PATIENT
  Age: 68 Year
  Sex: Female
  Weight: 49.94 kg

DRUGS (3)
  1. HUMIRA [Suspect]
     Indication: ENTERITIS
     Dosage: 4 IN 1 DAY
     Route: 058
     Dates: start: 201208, end: 20130213
  2. HUMIRA [Suspect]
     Indication: GASTROINTESTINAL DISORDER
  3. METHOTREXATE [Concomitant]
     Indication: PRODUCT USED FOR UNKNOWN INDICATION

REACTIONS (6)
  - Hepatic lesion [Unknown]
  - Pulmonary mass [Unknown]
  - Protein total increased [Unknown]
  - Malnutrition [Unknown]
  - Frequent bowel movements [Unknown]
  - Muscle atrophy [Unknown]
